FAERS Safety Report 6186083-X (Version None)
Quarter: 2009Q2

REPORT INFORMATION
  Report Type: 
  Country: None (occurrence: None)
  Receive Date: 20090511
  Receipt Date: 20090505
  Transmission Date: 20091009
  Serious: Yes (Other)
  Sender: FDA-Public Use
  Company Number: US-NOVOPROD-286878

PATIENT
  Sex: Female

DRUGS (2)
  1. NOVOLOG [Suspect]
     Indication: DIABETES MELLITUS
     Route: 058
  2. LEVEMIR [Suspect]
     Indication: DIABETES MELLITUS
     Route: 058

REACTIONS (3)
  - BLOOD GLUCOSE DECREASED [None]
  - GLYCOSYLATED HAEMOGLOBIN INCREASED [None]
  - LOSS OF CONSCIOUSNESS [None]
